FAERS Safety Report 21244298 (Version 2)
Quarter: 2022Q3

REPORT INFORMATION
  Report Type: Spontaneous
  Country: DE (occurrence: DE)
  Receive Date: 20220823
  Receipt Date: 20220902
  Transmission Date: 20221027
  Serious: Yes (Life-Threatening, Hospitalization, Other)
  Sender: FDA-Public Use
  Company Number: DE-ADIENNEP-2022AD000602

PATIENT
  Age: 42 Year
  Sex: Female

DRUGS (4)
  1. CYTARABINE [Suspect]
     Active Substance: CYTARABINE
     Indication: Autologous haematopoietic stem cell transplant
     Dosage: 200 MILLIGRAM/SQ. METER, QD, 200 MG/M2 ONCE DAILY ON DAYS -6 TO -3
     Route: 065
  2. ETOPOSIDE [Suspect]
     Active Substance: ETOPOSIDE
     Indication: Autologous haematopoietic stem cell transplant
     Dosage: 100 MILLIGRAM/SQ. METER, QD, 100 MG/M2 ONCE DAILY ON DAYS -6 TO -3
     Route: 065
  3. MELPHALAN [Suspect]
     Active Substance: MELPHALAN
     Indication: Autologous haematopoietic stem cell transplant
     Dosage: 100 MILLIGRAM/SQ. METER, QD, 100 MG/M2 ON DAY -2
     Route: 065
  4. THIOTEPA [Suspect]
     Active Substance: THIOTEPA
     Indication: Autologous haematopoietic stem cell transplant
     Dosage: 5 MILLIGRAM/KILOGRAM, QD, 5 MG/KG ON DAY -7
     Route: 065

REACTIONS (3)
  - Febrile neutropenia [Unknown]
  - Mucosal inflammation [Recovered/Resolved]
  - Off label use [Unknown]
